FAERS Safety Report 20061434 (Version 1)
Quarter: 2021Q4

REPORT INFORMATION
  Report Type: Spontaneous
  Country: CN (occurrence: CN)
  Receive Date: 20211112
  Receipt Date: 20211112
  Transmission Date: 20220303
  Serious: Yes (Other)
  Sender: FDA-Public Use
  Company Number: CN-Blueprint Medicines Corporation-SO-CN-2021-002124

PATIENT

DRUGS (1)
  1. GAVRETO [Suspect]
     Active Substance: PRALSETINIB
     Indication: Product used for unknown indication
     Route: 048

REACTIONS (6)
  - Respiratory tract oedema [Unknown]
  - Pain of skin [Unknown]
  - Dyspnoea [Unknown]
  - Chest pain [Unknown]
  - Cough [Unknown]
  - Oedema peripheral [Unknown]
